FAERS Safety Report 22624895 (Version 16)
Quarter: 2023Q4

REPORT INFORMATION
  Report Type: Spontaneous
  Country: FR (occurrence: FR)
  Receive Date: 20230621
  Receipt Date: 20231128
  Transmission Date: 20240110
  Serious: Yes (Other)
  Sender: FDA-Public Use
  Company Number: FR-PFIZER INC-PV202300053501

PATIENT
  Age: 57 Year
  Sex: Female

DRUGS (2)
  1. PALBOCICLIB [Suspect]
     Active Substance: PALBOCICLIB
     Indication: Breast cancer female
     Dosage: UNK
  2. EXEMESTANE [Suspect]
     Active Substance: EXEMESTANE
     Indication: Breast cancer female
     Dosage: UNK

REACTIONS (28)
  - Stomatitis [Recovering/Resolving]
  - Dyspnoea [Recovering/Resolving]
  - Nausea [Recovering/Resolving]
  - Vision blurred [Recovering/Resolving]
  - Rash maculo-papular [Recovering/Resolving]
  - Fatigue [Recovering/Resolving]
  - Palpitations [Recovering/Resolving]
  - Dizziness [Recovering/Resolving]
  - Myalgia [Not Recovered/Not Resolved]
  - Peripheral sensory neuropathy [Not Recovered/Not Resolved]
  - Palmar-plantar erythrodysaesthesia syndrome [Recovering/Resolving]
  - Alopecia [Not Recovered/Not Resolved]
  - Dry skin [Unknown]
  - Loss of personal independence in daily activities [Unknown]
  - Pain in extremity [Not Recovered/Not Resolved]
  - Pruritus [Recovering/Resolving]
  - Abdominal pain [Recovering/Resolving]
  - Dysgeusia [Recovered/Resolved]
  - Epistaxis [Recovered/Resolved]
  - Insomnia [Recovering/Resolving]
  - Oedema peripheral [Recovering/Resolving]
  - Gastrooesophageal reflux disease [Recovering/Resolving]
  - Oesophageal pain [Recovering/Resolving]
  - Cough [Recovered/Resolved]
  - Vomiting [Recovered/Resolved]
  - Decreased appetite [Recovered/Resolved]
  - Diarrhoea [Recovered/Resolved]
  - Constipation [Not Recovered/Not Resolved]
